FAERS Safety Report 17346046 (Version 4)
Quarter: 2020Q2

REPORT INFORMATION
  Report Type: Spontaneous
  Country: CO (occurrence: CO)
  Receive Date: 20200129
  Receipt Date: 20200616
  Transmission Date: 20200713
  Serious: Yes (Other)
  Sender: FDA-Public Use
  Company Number: CO-BIOMARINAP-CO-2017-115994

PATIENT
  Weight: 27 kg

DRUGS (1)
  1. VIMIZIM [Suspect]
     Active Substance: ELOSULFASE ALFA
     Indication: MUCOPOLYSACCHARIDOSIS IV
     Dosage: UNK
     Route: 065
     Dates: start: 20141029

REACTIONS (10)
  - Deafness [Unknown]
  - Joint contracture [Unknown]
  - Corneal opacity [Unknown]
  - Gait disturbance [Unknown]
  - Pharyngeal lesion [Unknown]
  - Heart valve incompetence [Unknown]
  - Tonsillar hypertrophy [Unknown]
  - Hypertension [Unknown]
  - Enlarged uvula [Unknown]
  - Arrhythmia [Unknown]
